FAERS Safety Report 6552948-X (Version None)
Quarter: 2010Q1

REPORT INFORMATION
  Report Type: 
  Country: None (occurrence: None)
  Receive Date: 20100122
  Receipt Date: 20100108
  Transmission Date: 20100710
  Serious: Yes (Hospitalization)
  Sender: FDA-Public Use
  Company Number: 4302

PATIENT
  Age: 80 Year
  Sex: Male
  Weight: 42 kg

DRUGS (5)
  1. PEGAPTANIB SODIUM (PEGAPTANIB SODIUM) [Suspect]
     Indication: MACULAR DEGENERATION
     Dosage: 0.3 MG, INTRAOCULAR
     Route: 031
     Dates: start: 20090316
  2. ADONA (CARBAZOCHROME SODIUM SULFONATE) [Concomitant]
  3. BESTRON (CEFMENOXIME HYDROCHLORIDE) [Concomitant]
  4. PANSPORIN T (CEFOTIAM HEXETIL HYDROCHLORIDE) [Concomitant]
  5. GATIFLOXACIN [Concomitant]

REACTIONS (1)
  - VITREOUS HAEMORRHAGE [None]
